FAERS Safety Report 9386472 (Version 2)
Quarter: 2013Q3

REPORT INFORMATION
  Report Type: Spontaneous
  Country: US (occurrence: US)
  Receive Date: 20130708
  Receipt Date: 20130823
  Transmission Date: 20140515
  Serious: Yes (Hospitalization)
  Sender: FDA-Public Use
  Company Number: US-BIOGENIDEC-2013BI058259

PATIENT
  Age: 32 Year
  Sex: Female

DRUGS (1)
  1. TECFIDERA [Suspect]
     Indication: MULTIPLE SCLEROSIS
     Dates: start: 20130529, end: 20130618

REACTIONS (8)
  - VIIth nerve paralysis [Recovered/Resolved]
  - Jaw disorder [Recovered/Resolved]
  - Abdominal distension [Recovered/Resolved]
  - Flushing [Recovered/Resolved]
  - Blepharospasm [Not Recovered/Not Resolved]
  - Eyelid ptosis [Not Recovered/Not Resolved]
  - Candida infection [Not Recovered/Not Resolved]
  - Abdominal discomfort [Recovered/Resolved]
